FAERS Safety Report 5031251-3 (Version None)
Quarter: 2006Q2

REPORT INFORMATION
  Report Type: 
  Country: None (occurrence: None)
  Receive Date: 20060619
  Receipt Date: 20060619
  Transmission Date: 20061013
  Serious: Yes (Other)
  Sender: FDA-Public Use
  Company Number: None

PATIENT
  Age: 18 Year
  Sex: Female
  Weight: 104.3273 kg

DRUGS (4)
  1. CYMBALTA [Suspect]
     Indication: BRACHIAL PLEXOPATHY
     Dosage: 30 MG ONCE DAILY PO
     Route: 048
     Dates: start: 20050706, end: 20060616
  2. CYMBALTA [Suspect]
     Indication: COMPLEX REGIONAL PAIN SYNDROME
     Dosage: 30 MG ONCE DAILY PO
     Route: 048
     Dates: start: 20050706, end: 20060616
  3. CYMBALTA [Suspect]
     Indication: NEUROPATHY
     Dosage: 30 MG ONCE DAILY PO
     Route: 048
     Dates: start: 20050706, end: 20060616
  4. CYMBALTA [Suspect]
     Indication: VERTEBRAL INJURY
     Dosage: 30 MG ONCE DAILY PO
     Route: 048
     Dates: start: 20050706, end: 20060616

REACTIONS (2)
  - BLOOD PRESSURE INCREASED [None]
  - WEIGHT INCREASED [None]
